FAERS Safety Report 5527998-2 (Version None)
Quarter: 2007Q4

REPORT INFORMATION
  Report Type: 
  Country: None (occurrence: None)
  Receive Date: 20071128
  Receipt Date: 20071115
  Transmission Date: 20080405
  Serious: Yes (Hospitalization)
  Sender: FDA-Public Use
  Company Number: DE-ASTRAZENECA-2007SE05183

PATIENT
  Age: 953 Month
  Sex: Female
  Weight: 94 kg

DRUGS (5)
  1. BLOPRESS [Suspect]
     Indication: HYPERTENSION
     Route: 048
     Dates: end: 20070801
  2. LUMIGAN [Suspect]
     Indication: GLAUCOMA
     Route: 047
     Dates: end: 20070801
  3. THEOPHYLLINE [Concomitant]
     Route: 048
  4. PILOCARPINE [Concomitant]
     Route: 065
  5. NEXIUM [Concomitant]
     Route: 048

REACTIONS (1)
  - HEPATOCELLULAR DAMAGE [None]
